FAERS Safety Report 10168916 (Version 1)
Quarter: 2014Q2

REPORT INFORMATION
  Report Type: Spontaneous
  Country: US (occurrence: None)
  Receive Date: 20140509
  Receipt Date: 20140509
  Transmission Date: 20141212
  Serious: Yes (Hospitalization)
  Sender: FDA-Public Use
  Company Number: UTC-048014

PATIENT
  Age: 66 Year
  Sex: Female

DRUGS (2)
  1. REMODULIN (2.5 MILLIGRAM/MILLILITERS, INJECTION FOR INFUSION) (TREPROSTINIL SODIUM) [Suspect]
     Indication: PULMONARY ARTERIAL HYPERTENSION
     Dosage: 72 UG/KG (0.05 UG/KG, 1 IN 1 MIN), INTRAVENOUS DRIP
     Dates: start: 20110329
  2. LETAIRIS (AMBRISENTAN) [Concomitant]

REACTIONS (5)
  - Swelling [None]
  - Neck pain [None]
  - Pyrexia [None]
  - Chills [None]
  - Medical device complication [None]
